FAERS Safety Report 12739523 (Version 2)
Quarter: 2016Q3

REPORT INFORMATION
  Report Type: Spontaneous
  Country: FR (occurrence: FR)
  Receive Date: 20160913
  Receipt Date: 20160921
  Transmission Date: 20161109
  Serious: Yes (Death, Other)
  Sender: FDA-Public Use
  Company Number: FR-MYLANLABS-2016M1038395

PATIENT

DRUGS (2)
  1. NOVOMIX [Concomitant]
     Active Substance: INSULIN ASPART
     Dosage: UNK
  2. FONDAPARINUX [Suspect]
     Active Substance: FONDAPARINUX
     Indication: THROMBOSIS PROPHYLAXIS
     Dosage: 2.5 MG/0.5ML, UNK
     Route: 058
     Dates: start: 20151016

REACTIONS (2)
  - Subdural haematoma [Fatal]
  - Off label use [Unknown]

NARRATIVE: CASE EVENT DATE: 2015
